FAERS Safety Report 5195566-0 (Version None)
Quarter: 2007Q1

REPORT INFORMATION
  Report Type: 
  Country: None (occurrence: None)
  Receive Date: 20070102
  Receipt Date: 20061227
  Transmission Date: 20070707
  Serious: Yes (Hospitalization, Disabling, Other)
  Sender: FDA-Public Use
  Company Number: US-ELI_LILLY_AND_COMPANY-US200612004526

PATIENT
  Age: 48 Year
  Sex: Female
  Weight: 89.795 kg

DRUGS (3)
  1. ZYPREXA [Suspect]
     Indication: PSYCHOTIC DISORDER
     Dates: start: 19960101, end: 19970101
  2. RISPERIDONE [Concomitant]
  3. QUETIAPINE FUMARATE [Concomitant]

REACTIONS (17)
  - CONVULSION [None]
  - DYSGRAPHIA [None]
  - DYSPHONIA [None]
  - EMOTIONAL DISTRESS [None]
  - GLUCOSE TOLERANCE IMPAIRED [None]
  - INCREASED APPETITE [None]
  - MALAISE [None]
  - MUSCLE TWITCHING [None]
  - NERVE INJURY [None]
  - NEUROLOGICAL SYMPTOM [None]
  - PAIN IN EXTREMITY [None]
  - PSYCHOTIC DISORDER [None]
  - SINUSITIS [None]
  - SPINAL OSTEOARTHRITIS [None]
  - SUICIDAL IDEATION [None]
  - TREMOR [None]
  - WEIGHT INCREASED [None]
